FAERS Safety Report 14757593 (Version 2)
Quarter: 2018Q2

REPORT INFORMATION
  Report Type: Report from Study
  Country: AR (occurrence: AR)
  Receive Date: 20180413
  Receipt Date: 20180425
  Transmission Date: 20180711
  Serious: Yes (Other)
  Sender: FDA-Public Use
  Company Number: AR-ROCHE-2100563

PATIENT
  Age: 42 Year
  Sex: Female
  Weight: 52 kg

DRUGS (7)
  1. OCRELIZUMAB. [Suspect]
     Active Substance: OCRELIZUMAB
     Dosage: OLE WEEK 24?SUBSEQUENT DOSES RECEIVED ON 16/DEC/2015 (WEEK 48), 08/JUN/2016 (WEEK 72), 16/NOV/2016 (
     Route: 042
     Dates: start: 20150527
  2. PLACEBO [Suspect]
     Active Substance: UNSPECIFIED INGREDIENT
     Dosage: WEEK 24?SUBSEQUENT DOSE RECEIVED ON 29/NOV/2013 (WEEK 48) AND 14/MAY/2014 (WEEK 72)
     Route: 042
     Dates: start: 20130617
  3. METHYLPREDNISOLONE. [Concomitant]
     Active Substance: METHYLPREDNISOLONE
     Dosage: SUBSEQUENT DOSES RECEIVED ON 15/JAN/2013, 17/JUN/2013, 29/NOV/2013, 14/MAY/2014, 12/NOV/2014, 26/NOV
     Route: 065
     Dates: start: 20121228
  4. TRIMETHOPRIM + SULFA [Concomitant]
     Route: 065
     Dates: start: 20180411
  5. OCRELIZUMAB. [Suspect]
     Active Substance: OCRELIZUMAB
     Indication: RELAPSING-REMITTING MULTIPLE SCLEROSIS
     Dosage: OLE WEEK 0?OCRELIZUMAB 600 MG INTRAVENOUS (IV) AS 300 MG INFUSIONS ON DAYS 1 AND 15 FOR THE FIRST DO
     Route: 042
     Dates: start: 20141112
  6. INTERFERON BETA-1A [Suspect]
     Active Substance: INTERFERON BETA-1A
     Indication: RELAPSING-REMITTING MULTIPLE SCLEROSIS
     Dosage: FURTHER DOSES RECEIVED ON 28/DEC/2012 TO 23/JAN/2013 (KIT NUMBER: 801705), 25/JAN/2013 TO 20/FEB/201
     Route: 058
     Dates: start: 20121228
  7. PLACEBO [Suspect]
     Active Substance: UNSPECIFIED INGREDIENT
     Indication: RELAPSING-REMITTING MULTIPLE SCLEROSIS
     Dosage: WEEK 1?ADMINISTERED AS DUAL INFUSION ON DAY 1 AND DAY 15 OF CYCLE 1, FOLLOWED BY SINGLE INFUSION FOR
     Route: 042
     Dates: start: 20121228

REACTIONS (2)
  - Maternal exposure before pregnancy [Unknown]
  - Anembryonic gestation [Unknown]

NARRATIVE: CASE EVENT DATE: 20180126
